FAERS Safety Report 7248224-2 (Version None)
Quarter: 2011Q1

REPORT INFORMATION
  Report Type: 
  Country: None (occurrence: None)
  Receive Date: 20110127
  Receipt Date: 20101202
  Transmission Date: 20110831
  Serious: Yes (Hospitalization, Other)
  Sender: FDA-Public Use
  Company Number: US-BAYER-201028660NA

PATIENT
  Sex: Female
  Weight: 108.84 kg

DRUGS (16)
  1. YASMIN [Suspect]
     Indication: MENOPAUSAL SYMPTOMS
  2. PROTONIX [Concomitant]
     Indication: GASTROOESOPHAGEAL REFLUX DISEASE
     Dosage: UNK
     Dates: start: 20060401, end: 20061101
  3. KLOR-CON M10 [Concomitant]
     Indication: MINERAL SUPPLEMENTATION
     Dosage: 10 MG, UNK
     Dates: start: 20060201
  4. YASMIN [Suspect]
     Indication: PREMENSTRUAL SYNDROME
  5. NORTRIPTYLINE HYDROCHLORIDE [Concomitant]
     Indication: FIBROMYALGIA
     Dosage: 100 MG, UNK
  6. PROZAC [Concomitant]
  7. CLINDAMYCIN [Concomitant]
     Indication: ACNE
     Dosage: UNK
     Dates: start: 20060201, end: 20060901
  8. NEURONTIN [Concomitant]
     Indication: FIBROMYALGIA
     Dosage: 1200 MG, UNK
     Dates: start: 20040101
  9. YASMIN [Suspect]
     Indication: ACNE
     Dosage: UNK
     Route: 048
     Dates: start: 20060106, end: 20060404
  10. LISINOPRIL [Concomitant]
     Indication: HYPERTENSION
     Dosage: UNK
     Dates: start: 20060101, end: 20090101
  11. CLINDAMYCIN [Concomitant]
     Dosage: UNK
     Dates: start: 20060201, end: 20060901
  12. FLEXERIL [Concomitant]
     Indication: MUSCLE RELAXANT THERAPY
     Dosage: 10 MG, UNK
  13. LORTAB [Concomitant]
     Indication: PAIN
     Dosage: 10/500 MG
  14. MOTRIN [Concomitant]
     Indication: PAIN
     Dosage: 800 MG, AS NEEDED
  15. HYDROCHLOROTHIAZIDE [Concomitant]
     Indication: HYPERTENSION
     Dosage: 25 MG, UNK
     Dates: start: 20060201
  16. DARVOCET [Concomitant]
     Indication: PAIN
     Dosage: AS NEEDED

REACTIONS (5)
  - CHEST PAIN [None]
  - MUSCULOSKELETAL PAIN [None]
  - CEREBROVASCULAR ACCIDENT [None]
  - PULMONARY EMBOLISM [None]
  - DYSPNOEA [None]
